FAERS Safety Report 25004904 (Version 1)
Quarter: 2025Q1

REPORT INFORMATION
  Report Type: Spontaneous
  Country: FR (occurrence: FR)
  Receive Date: 20250224
  Receipt Date: 20250224
  Transmission Date: 20250409
  Serious: Yes (Life-Threatening)
  Sender: MERCK SHARP & DOHME LLC
  Company Number: None

PATIENT
  Age: 76 Year
  Sex: Male
  Weight: 103 kg

DRUGS (1)
  1. KEYTRUDA [Suspect]
     Active Substance: PEMBROLIZUMAB
     Indication: Clear cell renal cell carcinoma
     Dosage: 2 TREATMENTS RECEIVED ON 6 AND 27/12/24
     Route: 042
     Dates: start: 20241206, end: 20241227

REACTIONS (2)
  - Myositis [Recovering/Resolving]
  - Myocarditis [Recovering/Resolving]

NARRATIVE: CASE EVENT DATE: 20241231
